FAERS Safety Report 9315522 (Version 1)
Quarter: 2013Q2

REPORT INFORMATION
  Report Type: Spontaneous
  Country: US (occurrence: US)
  Receive Date: 20130529
  Receipt Date: 20130529
  Transmission Date: 20140414
  Serious: Yes (Hospitalization, Other)
  Sender: FDA-Public Use
  Company Number: US-009507513-2012SP015704

PATIENT
  Sex: Female
  Weight: 72.56 kg

DRUGS (2)
  1. NUVARING [Suspect]
     Indication: CONTRACEPTION
     Dosage: UNK
     Route: 067
     Dates: start: 200910, end: 201002
  2. NUVARING [Suspect]
     Indication: MENSTRUAL DISORDER

REACTIONS (3)
  - Pulmonary embolism [Unknown]
  - Endometrial ablation [Unknown]
  - Off label use [Unknown]
